FAERS Safety Report 14724144 (Version 4)
Quarter: 2018Q4

REPORT INFORMATION
  Report Type: Report from Study
  Country: JP (occurrence: JP)
  Receive Date: 20180405
  Receipt Date: 20181221
  Transmission Date: 20190204
  Serious: Yes (Hospitalization)
  Sender: FDA-Public Use
  Company Number: JP-PFIZER INC-2018134588

PATIENT
  Age: 69 Year
  Sex: Female
  Weight: 46 kg

DRUGS (9)
  1. METHOTREXATE 2.5MG [Suspect]
     Active Substance: METHOTREXATE
     Indication: RHEUMATOID ARTHRITIS
     Dosage: 10 MG, WEEKLY
     Dates: end: 20160727
  2. BONALON [Concomitant]
     Active Substance: ALENDRONATE SODIUM
     Route: 048
  3. CRESTOR [Concomitant]
     Active Substance: ROSUVASTATIN CALCIUM
     Route: 048
  4. HYPEN /00340101/ [Concomitant]
     Active Substance: INDAPAMIDE
     Route: 048
  5. PROTECADIN [Concomitant]
     Active Substance: LAFUTIDINE
     Route: 048
  6. XELJANZ [Suspect]
     Active Substance: TOFACITINIB CITRATE
     Indication: RHEUMATOID ARTHRITIS
     Dosage: 5 MG, 2X/DAY
     Route: 048
     Dates: start: 20151026, end: 20160727
  7. CARERAM [Suspect]
     Active Substance: IGURATIMOD
     Dosage: UNK
     Dates: end: 20160812
  8. FOLIAMIN [Concomitant]
     Active Substance: FOLIC ACID
     Route: 048
  9. MEDROL [Suspect]
     Active Substance: METHYLPREDNISOLONE
     Dosage: 4 MG, DAILY
     Route: 048

REACTIONS (1)
  - Psoas abscess [Recovering/Resolving]

NARRATIVE: CASE EVENT DATE: 20160725
